FAERS Safety Report 14739114 (Version 1)
Quarter: 2018Q2

REPORT INFORMATION
  Report Type: Spontaneous
  Country: FR (occurrence: FR)
  Receive Date: 20180410
  Receipt Date: 20180410
  Transmission Date: 20180711
  Serious: Yes (Death, Hospitalization)
  Sender: FDA-Public Use
  Company Number: FR-TEVA-2018-FR-879917

PATIENT
  Age: 89 Year
  Sex: Female
  Weight: 67.7 kg

DRUGS (7)
  1. VANCOMYCINE [Suspect]
     Active Substance: VANCOMYCIN
     Indication: PSEUDOMEMBRANOUS COLITIS
     Dosage: 500 MILLIGRAM DAILY;
     Route: 048
  2. DIFICLIR 200 MG FILM-COATED TABLETS [Suspect]
     Active Substance: FIDAXOMICIN
     Indication: PSEUDOMEMBRANOUS COLITIS
     Dosage: 2 DOSAGE FORMS DAILY;
     Route: 048
  3. ELIQUIS [Concomitant]
     Active Substance: APIXABAN
     Route: 048
  4. OFLOXACINE [Concomitant]
     Active Substance: OFLOXACIN
     Route: 048
  5. IMOVANE 7.5 MG FILM-COATED TABLETS [Concomitant]
     Dosage: 1 DOSAGE FORMS DAILY;
     Route: 048
  6. LEVOTHYROX 125 MICROGRAMS, SCORED TABLET [Concomitant]
     Indication: HYPOTHYROIDISM
     Dosage: 1 DOSAGE FORMS DAILY;
     Route: 048
  7. PARACETAMOL [Concomitant]
     Active Substance: ACETAMINOPHEN
     Dosage: ON DEMAND
     Route: 048

REACTIONS (1)
  - Hepatitis [Fatal]
